FAERS Safety Report 5204488-8 (Version None)
Quarter: 2007Q1

REPORT INFORMATION
  Report Type: 
  Country: None (occurrence: None)
  Receive Date: 20070110
  Receipt Date: 20060412
  Transmission Date: 20070707
  Serious: No
  Sender: FDA-Public Use
  Company Number: US-BRISTOL-MYERS SQUIBB COMPANY-13344494

PATIENT
  Age: 9 Year
  Sex: Male
  Weight: 36 kg

DRUGS (3)
  1. ABILIFY [Suspect]
     Indication: BIPOLAR DISORDER
     Dates: start: 20030101
  2. FISH OIL [Concomitant]
  3. CONCENTRATE FOCUS FORMULA [Concomitant]

REACTIONS (4)
  - AGGRESSION [None]
  - DYSPNOEA [None]
  - EPISTAXIS [None]
  - MUSCLE TWITCHING [None]
